FAERS Safety Report 4992949-6 (Version None)
Quarter: 2006Q1

REPORT INFORMATION
  Report Type: 
  Country: None (occurrence: None)
  Receive Date: 20060313
  Receipt Date: 20051222
  Transmission Date: 20060701
  Serious: No
  Sender: FDA-Public Use
  Company Number: 2005-BP-21746BP

PATIENT
  Age: 71 Year
  Sex: Female

DRUGS (6)
  1. SPIRIVA [Suspect]
     Indication: CHRONIC OBSTRUCTIVE PULMONARY DISEASE
     Dosage: 18 MCG (18 MCG),IH
     Dates: start: 20050810
  2. ADVAIR (SERETIDE) [Suspect]
     Indication: CHRONIC OBSTRUCTIVE PULMONARY DISEASE
  3. MUCINEX (GUAIFENESIN) [Concomitant]
  4. LOTREL [Concomitant]
  5. INDA [Concomitant]
  6. ALBUTEROL SULFATE AUTOHALER [Concomitant]

REACTIONS (1)
  - ALOPECIA [None]
